FAERS Safety Report 15607156 (Version 2)
Quarter: 2019Q1

REPORT INFORMATION
  Report Type: Report from Study
  Country: JP (occurrence: JP)
  Receive Date: 20181112
  Receipt Date: 20190208
  Transmission Date: 20190417
  Serious: Yes (Death, Life-Threatening, Hospitalization, Other)
  Sender: FDA-Public Use
  Company Number: JP-VIFOR (INTERNATIONAL) INC.-VIT-2018-11225

PATIENT
  Age: 78 Year
  Sex: Female
  Weight: 47.3 kg

DRUGS (12)
  1. THYRADIN-S [Concomitant]
     Active Substance: LEVOTHYROXINE
     Route: 048
  2. FEBURIC [Concomitant]
     Active Substance: FEBUXOSTAT
     Route: 048
  3. KAYEXALATE [Concomitant]
     Active Substance: SODIUM POLYSTYRENE SULFONATE
     Route: 048
  4. CALFINA [Concomitant]
     Active Substance: ALFACALCIDOL
     Route: 048
  5. ADALAT-CR40 [Concomitant]
     Route: 048
  6. AZILVA [Concomitant]
     Active Substance: AZILSARTAN KAMEDOXOMIL
     Route: 048
  7. VELPHORO [Suspect]
     Active Substance: FERRIC OXYHYDROXIDE
     Route: 048
     Dates: start: 20170105, end: 20171008
  8. MIRCERA [Concomitant]
     Active Substance: METHOXY POLYETHYLENE GLYCOL-EPOETIN BETA
  9. SODIUM FERROUS CITRATE [Concomitant]
     Active Substance: SODIUM FERROUS CITRATE
     Route: 048
  10. CALTAN [Concomitant]
     Active Substance: CALCIUM CARBONATE
     Indication: HYPERPHOSPHATAEMIA
     Route: 048
  11. TAKEPRON OD [Concomitant]
     Active Substance: LANSOPRAZOLE
     Route: 048
  12. VELPHORO [Suspect]
     Active Substance: FERRIC OXYHYDROXIDE
     Indication: HYPERPHOSPHATAEMIA
     Route: 048
     Dates: start: 20160929, end: 20170104

REACTIONS (7)
  - Arthritis bacterial [Recovering/Resolving]
  - Shock haemorrhagic [Fatal]
  - Blood iron abnormal [Not Recovered/Not Resolved]
  - C-reactive protein increased [Recovering/Resolving]
  - Anaemia [Fatal]
  - Gastrointestinal haemorrhage [Fatal]
  - Shunt malfunction [Recovered/Resolved]

NARRATIVE: CASE EVENT DATE: 20170207
